FAERS Safety Report 14154278 (Version 1)
Quarter: 2017Q4

REPORT INFORMATION
  Report Type: Spontaneous
  Country: GB (occurrence: GB)
  Receive Date: 20171102
  Receipt Date: 20171102
  Transmission Date: 20180321
  Serious: Yes (Other)
  Sender: FDA-Public Use
  Company Number: GB-MYLANLABS-2017M1068309

PATIENT
  Age: 52 Year
  Sex: Female
  Weight: 47.73 kg

DRUGS (14)
  1. LONGTEC [Concomitant]
     Active Substance: OXYCODONE HYDROCHLORIDE
  2. SERTRALINE [Concomitant]
     Active Substance: SERTRALINE HYDROCHLORIDE
     Dosage: IN THE MORNING ON WRITTEN INSTRUCTION OF THE SPECIALIST
  3. ACIDEX [Concomitant]
     Active Substance: CALCIUM CARBONATE\SODIUM ALGINATE\SODIUM BICARBONATE
     Dosage: 10-20ML TO BE TAKEN AFTER MEALS AND AT BEDTIME
  4. LEVOMEPROMAZINE [Concomitant]
     Active Substance: LEVOMEPROMAZINE
     Indication: NAUSEA
     Dosage: AS REQUIRED FOR NAUSEA REFRACTORY TO CYCLIZINE
  5. LEVOMEPROMAZINE [Concomitant]
     Active Substance: LEVOMEPROMAZINE
     Dosage: AT NIGHT
  6. OXYCODONE [Concomitant]
     Active Substance: OXYCODONE
     Indication: BREAKTHROUGH PAIN
     Dosage: 5MG/5ML, 2.5MG TO 5MG AS REQUIRED 4-6 HOURLY
  7. ZOPICLONE [Concomitant]
     Active Substance: ZOPICLONE
     Dosage: AT NIGHT AS ADVISED BY SPECIALIST
  8. PARACETAMOL [Concomitant]
     Active Substance: ACETAMINOPHEN
     Dosage: TO BE TAKEN EVERY 4-6 HOURS UP TO 4 TIMES 1 DAY
  9. SENNA [Concomitant]
     Active Substance: SENNA LEAF\SENNOSIDES\SENNOSIDES A AND B
     Dosage: AT NIGHT
  10. CYCLIZINE [Concomitant]
     Active Substance: CYCLIZINE
  11. MIRTAZAPINE. [Suspect]
     Active Substance: MIRTAZAPINE
     Indication: ANXIETY
     Route: 048
     Dates: start: 20170714, end: 20170804
  12. LANSOPRAZOLE. [Concomitant]
     Active Substance: LANSOPRAZOLE
     Dosage: EACH MORNING
  13. DOCUSATE [Concomitant]
     Active Substance: DOCUSATE
  14. MICONAZOLE. [Concomitant]
     Active Substance: MICONAZOLE
     Dosage: 20MG/G, AFTER MEALS FOR 5-7 DAYS

REACTIONS (1)
  - Paranoia [Recovered/Resolved]
